FAERS Safety Report 9255316 (Version 1)
Quarter: 2013Q1

REPORT INFORMATION
  Report Type: Spontaneous
  Country: US (occurrence: None)
  Receive Date: 20121212
  Receipt Date: 20121212
  Transmission Date: 20140127
  Serious: No
  Sender: FDA-Public Use
  Company Number: 1209USA011274

PATIENT
  Age: 55 Year
  Sex: Male

DRUGS (3)
  1. VICTRELIS (BOCEPREVIR) CAPSULE, 200MG [Suspect]
     Indication: HEPATITIS C
     Route: 048
     Dates: start: 20120914
  2. PEGINTRON (PEGINTERFERON ALFA-2B) POWDER FOR INJECTION [Suspect]
  3. RIBASPHERE [Suspect]

REACTIONS (8)
  - Fatigue [None]
  - Headache [None]
  - Injection site pruritus [None]
  - Injection site scab [None]
  - Haemorrhoids [None]
  - Constipation [None]
  - Dysgeusia [None]
  - Musculoskeletal discomfort [None]
